FAERS Safety Report 11468241 (Version 2)
Quarter: 2015Q3

REPORT INFORMATION
  Report Type: Spontaneous
  Country: US (occurrence: US)
  Receive Date: 20150903
  Receipt Date: 20150903
  Transmission Date: 20151125
  Serious: No
  Sender: FDA-Public Use
  Company Number: US-ELI_LILLY_AND_COMPANY-US201108005251

PATIENT
  Age: 62 Year
  Sex: Female

DRUGS (3)
  1. AMBIEN CR [Concomitant]
     Active Substance: ZOLPIDEM TARTRATE
  2. TRAMADOL. [Concomitant]
     Active Substance: TRAMADOL
  3. CYMBALTA [Suspect]
     Active Substance: DULOXETINE HYDROCHLORIDE
     Indication: NERVE INJURY
     Dosage: 60 MG, QD
     Dates: start: 201104, end: 20110808

REACTIONS (12)
  - Feeling hot [Recovering/Resolving]
  - Intentional product misuse [Not Recovered/Not Resolved]
  - Headache [Recovering/Resolving]
  - Nausea [Recovering/Resolving]
  - Swelling face [Recovered/Resolved]
  - Erythema [Recovering/Resolving]
  - Eye swelling [Recovered/Resolved]
  - Abdominal discomfort [Unknown]
  - Off label use [Recovered/Resolved]
  - Hypersensitivity [Recovered/Resolved]
  - Drug withdrawal syndrome [Not Recovered/Not Resolved]
  - Paraesthesia [Not Recovered/Not Resolved]

NARRATIVE: CASE EVENT DATE: 201104
